FAERS Safety Report 4528732-5 (Version None)
Quarter: 2004Q4

REPORT INFORMATION
  Report Type: 
  Country: None (occurrence: None)
  Receive Date: 20041216
  Receipt Date: 20041117
  Transmission Date: 20050328
  Serious: Yes (Death)
  Sender: FDA-Public Use
  Company Number: JP-BRISTOL-MYERS SQUIBB COMPANY-12770418

PATIENT
  Age: 70 Year
  Sex: Male

DRUGS (4)
  1. TAXOL [Suspect]
     Indication: GASTRIC CANCER
     Route: 041
     Dates: start: 20040820, end: 20041101
  2. CPT-11 [Suspect]
     Indication: GASTRIC CANCER
     Route: 041
     Dates: start: 20040820, end: 20041101
  3. DECADRON [Suspect]
     Route: 042
     Dates: start: 20040820, end: 20041101
  4. PREDONINE [Suspect]
     Route: 048
     Dates: start: 20040915, end: 20041107

REACTIONS (2)
  - PULMONARY FIBROSIS [None]
  - RESPIRATORY MONILIASIS [None]
